FAERS Safety Report 7883284-7 (Version None)
Quarter: 2011Q4

REPORT INFORMATION
  Report Type: 
  Country: None (occurrence: None)
  Receive Date: 20111102
  Receipt Date: 20111020
  Transmission Date: 20120403
  Serious: No
  Sender: FDA-Public Use
  Company Number: PHFR2011GB05820

PATIENT
  Sex: Female

DRUGS (2)
  1. PHENYTOIN SODIUM [Concomitant]
     Dosage: 300 MG, UNK
  2. TEGRETOL [Suspect]
     Indication: EPILEPSY
     Dosage: 100 MG
     Route: 048

REACTIONS (1)
  - CONVULSION [None]
